FAERS Safety Report 19948420 (Version 2)
Quarter: 2021Q4

REPORT INFORMATION
  Report Type: Spontaneous
  Country: US (occurrence: US)
  Receive Date: 20211013
  Receipt Date: 20211018
  Transmission Date: 20220303
  Serious: No
  Sender: FDA-Public Use
  Company Number: US-JNJFOC-20211004901

PATIENT
  Age: 61 Year
  Sex: Male
  Weight: 91.63 kg

DRUGS (7)
  1. TYLENOL 8 HR ARTHRITIS PAIN [Suspect]
     Active Substance: ACETAMINOPHEN
     Indication: Pain in extremity
     Route: 048
     Dates: start: 202109
  2. MELOXICAM [Concomitant]
     Active Substance: MELOXICAM
     Indication: Pain in extremity
     Route: 065
     Dates: start: 202109
  3. ALEVE [Concomitant]
     Active Substance: NAPROXEN SODIUM
     Indication: Pain in extremity
     Route: 065
     Dates: start: 202109
  4. DICLOFENAC SODIUM [Concomitant]
     Active Substance: DICLOFENAC SODIUM
     Indication: Pain in extremity
  5. COVID-19 VACCINE [Concomitant]
     Indication: Product used for unknown indication
     Route: 065
     Dates: start: 20210315
  6. COVID-19 VACCINE [Concomitant]
     Route: 065
     Dates: start: 20210405
  7. NAPROXEN [Concomitant]
     Active Substance: NAPROXEN
     Indication: Pain in extremity
     Route: 065
     Dates: start: 202109

REACTIONS (1)
  - Drug ineffective [Unknown]

NARRATIVE: CASE EVENT DATE: 20210901
